FAERS Safety Report 7579573-6 (Version None)
Quarter: 2011Q2

REPORT INFORMATION
  Report Type: 
  Country: None (occurrence: None)
  Receive Date: 20110629
  Receipt Date: 20110622
  Transmission Date: 20111010
  Serious: Yes (Death, Hospitalization, Other)
  Sender: FDA-Public Use
  Company Number: US-JNJFOC-20110611741

PATIENT
  Sex: Male

DRUGS (2)
  1. SPORANOX [Suspect]
     Indication: FUNGAL INFECTION
     Route: 048
     Dates: start: 20080101, end: 20090101
  2. HEART MEDICATIONS (NOS) [Concomitant]
     Indication: CARDIAC DISORDER
     Route: 065

REACTIONS (3)
  - COMA [None]
  - DEATH [None]
  - MEMORY IMPAIRMENT [None]
